FAERS Safety Report 15306197 (Version 1)
Quarter: 2018Q3

REPORT INFORMATION
  Report Type: Spontaneous
  Country: US (occurrence: US)
  Receive Date: 20180822
  Receipt Date: 20180822
  Transmission Date: 20181010
  Serious: No
  Sender: FDA-Public Use
  Company Number: US-PFIZER INC-2018335531

PATIENT
  Age: 58 Year
  Sex: Female

DRUGS (1)
  1. ADVIL [Suspect]
     Active Substance: IBUPROFEN
     Dosage: NINE TO TWELVE 200 MG ADVIL DAILY

REACTIONS (2)
  - Overdose [Unknown]
  - Abdominal discomfort [Unknown]
